FAERS Safety Report 5503773-X (Version None)
Quarter: 2007Q4

REPORT INFORMATION
  Report Type: 
  Country: None (occurrence: None)
  Receive Date: 20071101
  Receipt Date: 20071024
  Transmission Date: 20080405
  Serious: Yes (Life-Threatening)
  Sender: FDA-Public Use
  Company Number: JP-BRISTOL-MYERS SQUIBB COMPANY-13959929

PATIENT
  Age: 4 Decade
  Sex: Female

DRUGS (3)
  1. GATIFLOXACIN [Suspect]
     Indication: BRONCHITIS
     Route: 048
  2. MUCODYNE [Concomitant]
  3. MEPTIN [Concomitant]

REACTIONS (1)
  - HYPOGLYCAEMIA [None]
